FAERS Safety Report 20647322 (Version 1)
Quarter: 2022Q1

REPORT INFORMATION
  Report Type: Spontaneous
  Country: CN (occurrence: CN)
  Receive Date: 20220329
  Receipt Date: 20220329
  Transmission Date: 20220423
  Serious: Yes (Life-Threatening, Hospitalization, Other)
  Sender: FDA-Public Use
  Company Number: CN-ABBVIE-22K-035-4335351-00

PATIENT
  Age: 74 Year
  Sex: Female
  Weight: 45 kg

DRUGS (2)
  1. VALPROATE SODIUM [Suspect]
     Active Substance: VALPROATE SODIUM
     Indication: Epilepsy
     Dosage: 800 MG, Q12H
     Route: 065
     Dates: start: 20201020, end: 20201020
  2. VALPROATE SODIUM [Suspect]
     Active Substance: VALPROATE SODIUM
     Indication: Epilepsy
     Dosage: 400 MG, TID
     Route: 045
     Dates: start: 20201020, end: 20201026

REACTIONS (3)
  - Haematuria [Unknown]
  - Upper gastrointestinal haemorrhage [Unknown]
  - Platelet count decreased [Unknown]
